FAERS Safety Report 8002707-6 (Version None)
Quarter: 2011Q4

REPORT INFORMATION
  Report Type: 
  Country: None (occurrence: None)
  Receive Date: 20111222
  Receipt Date: 20111212
  Transmission Date: 20120403
  Serious: Yes (Other)
  Sender: FDA-Public Use
  Company Number: JP-MERCK-1112USA01965

PATIENT
  Age: 53 Year
  Sex: Male
  Weight: 55 kg

DRUGS (4)
  1. STROMECTOL [Suspect]
     Indication: ACARODERMATITIS
     Route: 048
     Dates: start: 20111104, end: 20111104
  2. EURAX [Concomitant]
     Indication: ACARODERMATITIS
     Route: 065
     Dates: start: 20111104, end: 20111118
  3. NEOMALLERMIN TR [Concomitant]
     Indication: PRURITUS
     Route: 048
     Dates: start: 20111104, end: 20111118
  4. STROMECTOL [Suspect]
     Route: 048
     Dates: start: 20111118, end: 20111118

REACTIONS (6)
  - ALANINE AMINOTRANSFERASE INCREASED [None]
  - BLOOD ALKALINE PHOSPHATASE INCREASED [None]
  - BLOOD BILIRUBIN INCREASED [None]
  - LIVER DISORDER [None]
  - GASTROOESOPHAGEAL REFLUX DISEASE [None]
  - ASPARTATE AMINOTRANSFERASE INCREASED [None]
